FAERS Safety Report 18857652 (Version 1)
Quarter: 2021Q1

REPORT INFORMATION
  Report Type: Spontaneous
  Country: GB (occurrence: GB)
  Receive Date: 20210208
  Receipt Date: 20210208
  Transmission Date: 20210420
  Serious: Yes (Hospitalization, Other)
  Sender: FDA-Public Use
  Company Number: GB-35507-2021-01135

PATIENT
  Age: 22 Year
  Sex: Male

DRUGS (14)
  1. KETAMINE [Suspect]
     Active Substance: KETAMINE
     Indication: ANAESTHESIA
     Dosage: UNK, UPTO 06 MG/KG/HR
     Route: 065
  2. MIDAZOLAM. [Suspect]
     Active Substance: MIDAZOLAM
     Indication: ANAESTHESIA
     Dosage: 20 MILLIGRAM (20 MG/HR ALL SEDATION STOPPED 28/01)
     Route: 065
     Dates: end: 20170128
  3. LEVETIRACETAM. [Suspect]
     Active Substance: LEVETIRACETAM
     Indication: STATUS EPILEPTICUS
     Dosage: UNK
     Route: 065
  4. TOPIRAMAT [Suspect]
     Active Substance: TOPIRAMATE
     Indication: STATUS EPILEPTICUS
     Dosage: UNK
     Route: 065
  5. VALPROATE SODIUM. [Suspect]
     Active Substance: VALPROATE SODIUM
     Indication: STATUS EPILEPTICUS
     Dosage: UNK
     Route: 065
  6. METHYLPREDNISOLONE. [Concomitant]
     Active Substance: METHYLPREDNISOLONE
     Indication: STATUS EPILEPTICUS
     Dosage: 1 GRAM, QD
     Route: 042
  7. PHENOBARBITONE [PHENOBARBITAL] [Suspect]
     Active Substance: PHENOBARBITAL
     Indication: STATUS EPILEPTICUS
     Dosage: UNK
     Route: 065
  8. LACOSAMIDE. [Suspect]
     Active Substance: LACOSAMIDE
     Indication: STATUS EPILEPTICUS
     Dosage: UNK
     Route: 065
  9. PHENYTOIN SODIUM. [Suspect]
     Active Substance: PHENYTOIN SODIUM
     Indication: STATUS EPILEPTICUS
     Dosage: UNK (FULL LOADING DOSE)
     Route: 065
  10. FENTANYL. [Suspect]
     Active Substance: FENTANYL
     Indication: ANAESTHESIA
     Dosage: UNK (UPTO 300MCG/KG/H)
     Route: 065
  11. THIOPENTAL SODIUM. [Suspect]
     Active Substance: THIOPENTAL SODIUM
     Indication: ANAESTHESIA
     Dosage: UNK (UPTO 8 MG/KG/HR)
     Route: 042
  12. PROPOFOL. [Suspect]
     Active Substance: PROPOFOL
     Indication: ANAESTHESIA
     Dosage: 1 MILLIGRAM/KILOGRAM, UNK
     Route: 065
     Dates: end: 20170128
  13. PERAMPANEL [Suspect]
     Active Substance: PERAMPANEL
     Indication: STATUS EPILEPTICUS
     Dosage: 14 MILLIGRAM, QD (SLOWLY UP?TITRATED)
     Route: 065
  14. CLONAZEPAM. [Suspect]
     Active Substance: CLONAZEPAM
     Indication: STATUS EPILEPTICUS
     Dosage: UNK
     Route: 065

REACTIONS (14)
  - Decubitus ulcer [Unknown]
  - Fungal infection [Unknown]
  - Hypothyroidism [Unknown]
  - Pelvic venous thrombosis [Unknown]
  - Anaemia [Unknown]
  - Weight decreased [Unknown]
  - Pyrexia [Unknown]
  - Haematuria traumatic [Unknown]
  - Muscle contracture [Unknown]
  - Infection [Unknown]
  - Intensive care unit acquired weakness [Unknown]
  - Liver function test abnormal [Unknown]
  - Thrombophlebitis [Unknown]
  - Tachycardia [Unknown]
